FAERS Safety Report 18585186 (Version 1)
Quarter: 2020Q4

REPORT INFORMATION
  Report Type: Spontaneous
  Country: US (occurrence: US)
  Receive Date: 20201204
  Receipt Date: 20201204
  Transmission Date: 20210114
  Serious: No
  Sender: FDA-Public Use
  Company Number: None

PATIENT
  Age: 86 Year
  Sex: Female
  Weight: 81.45 kg

DRUGS (12)
  1. BICALUTAMIDE. [Concomitant]
     Active Substance: BICALUTAMIDE
  2. PREDNISONE. [Concomitant]
     Active Substance: PREDNISONE
  3. TELMISARTAN. [Concomitant]
     Active Substance: TELMISARTAN
  4. FOLIC ACID. [Concomitant]
     Active Substance: FOLIC ACID
  5. EZETIMIBE. [Concomitant]
     Active Substance: EZETIMIBE
  6. BETAMETHASONE DIPROPIONATE AUG [Concomitant]
  7. AMLODIPINE BESYLATE. [Concomitant]
     Active Substance: AMLODIPINE BESYLATE
  8. VITAMIN D3 [Concomitant]
     Active Substance: CHOLECALCIFEROL
  9. SIMVASTATIN. [Concomitant]
     Active Substance: SIMVASTATIN
  10. ABIRATERONE. [Suspect]
     Active Substance: ABIRATERONE ACETATE
     Indication: PROSTATE CANCER
     Route: 048
     Dates: start: 20190926, end: 20201204
  11. VITAMIN B12 [Concomitant]
     Active Substance: CYANOCOBALAMIN
  12. MIRALAX [Concomitant]
     Active Substance: POLYETHYLENE GLYCOL 3350

REACTIONS (1)
  - Disease progression [None]

NARRATIVE: CASE EVENT DATE: 20201204
